FAERS Safety Report 7899896-0 (Version None)
Quarter: 2011Q4

REPORT INFORMATION
  Report Type: 
  Country: None (occurrence: None)
  Receive Date: 20111107
  Receipt Date: 20111004
  Transmission Date: 20120403
  Serious: No
  Sender: FDA-Public Use
  Company Number: US-AMGEN-USASP2011037432

PATIENT
  Age: 61 Year
  Sex: Female

DRUGS (4)
  1. ARAVA [Concomitant]
     Dosage: UNK
  2. ENBREL [Suspect]
     Indication: RHEUMATOID ARTHRITIS
     Dosage: 50 MG, QWK
     Dates: start: 20020601
  3. SENZIA [Concomitant]
     Dosage: UNK
  4. HUMIRA [Concomitant]

REACTIONS (24)
  - HYPOAESTHESIA [None]
  - RASH GENERALISED [None]
  - GAIT DISTURBANCE [None]
  - CATARACT [None]
  - JOINT SWELLING [None]
  - FALL [None]
  - ARTHRALGIA [None]
  - MOBILITY DECREASED [None]
  - PAIN [None]
  - DIARRHOEA [None]
  - DRUG INEFFECTIVE [None]
  - FATIGUE [None]
  - BALANCE DISORDER [None]
  - OEDEMA PERIPHERAL [None]
  - DYSPNOEA [None]
  - CHEST DISCOMFORT [None]
  - SKIN DEPIGMENTATION [None]
  - SWOLLEN TONGUE [None]
  - DIZZINESS [None]
  - VISUAL IMPAIRMENT [None]
  - PARAESTHESIA [None]
  - LIP SWELLING [None]
  - MUSCULOSKELETAL STIFFNESS [None]
  - TREMOR [None]
